FAERS Safety Report 8828205 (Version 1)
Quarter: 2012Q4

REPORT INFORMATION
  Report Type: 
  Country: CN (occurrence: CN)
  Receive Date: 20121005
  Receipt Date: 20121005
  Transmission Date: 20130627
  Serious: Yes (Hospitalization)
  Sender: FDA-Public Use
  Company Number: CN-SANOFI-AVENTIS-2012SA070628

PATIENT
  Age: 34 Year
  Sex: Male
  Weight: 90 kg

DRUGS (4)
  1. PLAVIX [Suspect]
     Indication: ANTIPLATELET THERAPY
     Route: 048
     Dates: start: 201111
  2. ASPIRIN [Concomitant]
     Indication: ANTIPLATELET THERAPY
     Route: 048
     Dates: start: 201111
  3. CONCOR [Concomitant]
     Indication: CORONARY HEART DISEASE
     Route: 048
     Dates: start: 201111
  4. ATORVASTATIN [Concomitant]
     Indication: CORONARY HEART DISEASE
     Route: 048
     Dates: start: 201111

REACTIONS (4)
  - Coronary artery stenosis [Recovering/Resolving]
  - Chest discomfort [Recovering/Resolving]
  - Chest pain [Recovering/Resolving]
  - Coronary artery restenosis [Recovering/Resolving]
